FAERS Safety Report 7945356-8 (Version None)
Quarter: 2011Q4

REPORT INFORMATION
  Report Type: 
  Country: None (occurrence: None)
  Receive Date: 20111129
  Receipt Date: 20110425
  Transmission Date: 20120403
  Serious: No
  Sender: FDA-Public Use
  Company Number: US-GLAXOSMITHKLINE-A0924386A

PATIENT
  Age: 26 Year
  Sex: Female

DRUGS (2)
  1. WELLBUTRIN SR [Suspect]
     Indication: ATTENTION DEFICIT/HYPERACTIVITY DISORDER
     Dosage: 300MG VARIABLE DOSE
     Route: 048
     Dates: start: 20110414
  2. NO CONCURRENT MEDICATION [Concomitant]

REACTIONS (7)
  - EYELID OEDEMA [None]
  - DRY EYE [None]
  - PAIN [None]
  - ERYTHEMA [None]
  - EYELID PTOSIS [None]
  - BLEPHAROSPASM [None]
  - EYE IRRITATION [None]
